FAERS Safety Report 10155195 (Version 1)
Quarter: 2014Q2

REPORT INFORMATION
  Report Type: Spontaneous
  Country: US (occurrence: None)
  Receive Date: 20140505
  Receipt Date: 20140505
  Transmission Date: 20141212
  Serious: Yes (Other)
  Sender: FDA-Public Use
  Company Number: None

PATIENT
  Age: 62 Year
  Sex: Female

DRUGS (1)
  1. OTEZLA [Suspect]
     Indication: PSORIATIC ARTHROPATHY
     Dosage: QD TO BID
     Route: 048
     Dates: start: 20140428, end: 20140501

REACTIONS (3)
  - Nausea [None]
  - Diarrhoea [None]
  - Rectal haemorrhage [None]
